FAERS Safety Report 6962672 (Version 2)
Quarter: 2013Q2

REPORT INFORMATION
  Report Type: Spontaneous
  Country: CA (occurrence: CA)
  Receive Date: 20090407
  Receipt Date: 20130409
  Transmission Date: 20140414
  Serious: Yes (Death)
  Sender: FDA-Public Use
  Company Number: CA-B.I. PHARMACEUTICALS,INC./RIDGEFIELD-2009-BP-04227BP

PATIENT
  Sex: Male

DRUGS (1)
  1. MIRAPEX [Suspect]
     Indication: PARKINSON^S DISEASE
     Dates: start: 200404, end: 2006

REACTIONS (5)
  - Death [Fatal]
  - Pathological gambling [Not Recovered/Not Resolved]
  - Hypersexuality [Unknown]
  - Compulsive shopping [Unknown]
  - Obsessive-compulsive disorder [Unknown]
